FAERS Safety Report 5061169-1 (Version None)
Quarter: 2006Q3

REPORT INFORMATION
  Report Type: 
  Country: None (occurrence: None)
  Receive Date: 20060719
  Receipt Date: 20060719
  Transmission Date: 20061208
  Serious: Yes (Hospitalization)
  Sender: FDA-Public Use
  Company Number: None

PATIENT
  Age: 68 Year
  Sex: Male
  Weight: 96.6162 kg

DRUGS (5)
  1. ACETAMINOPHEN/CODEINE  30 MG TAB [Suspect]
     Dosage: ONE TABLET Q4HR PRN
  2. LORAZEPAM [Suspect]
     Indication: AGITATION
     Dosage: ONE QHS PRN ANXIETY OR AGITATION
  3. LORAZEPAM [Suspect]
     Indication: ANXIETY
     Dosage: ONE QHS PRN ANXIETY OR AGITATION
  4. MIDAZOLAM HYDROCHLORIDE [Suspect]
  5. MEPERIDINE HCL [Suspect]

REACTIONS (4)
  - AGGRESSION [None]
  - ANXIETY [None]
  - CONFUSIONAL STATE [None]
  - MENTAL STATUS CHANGES [None]
